FAERS Safety Report 6414457-8 (Version None)
Quarter: 2009Q4

REPORT INFORMATION
  Report Type: 
  Country: None (occurrence: None)
  Receive Date: 20091026
  Receipt Date: 20091015
  Transmission Date: 20100525
  Serious: Yes (Hospitalization)
  Sender: FDA-Public Use
  Company Number: PHHO2009JP09867

PATIENT
  Sex: Female
  Weight: 33 kg

DRUGS (4)
  1. EXELON [Suspect]
     Indication: DEMENTIA ALZHEIMER'S TYPE
     Dosage: DOSE LEVEL 1
     Route: 062
     Dates: start: 20080913, end: 20081010
  2. EXELON [Suspect]
     Dosage: DOSE LEVEL 2
     Route: 062
     Dates: start: 20081011, end: 20081107
  3. EXELON [Suspect]
     Dosage: DOSE LEVEL 3
     Route: 062
     Dates: start: 20081108, end: 20081205
  4. EXELON [Suspect]
     Dosage: DOSE LEVEL 4
     Route: 062
     Dates: start: 20081206, end: 20090918

REACTIONS (4)
  - CHEST PAIN [None]
  - CHOLELITHIASIS [None]
  - CORONARY ARTERY STENOSIS [None]
  - ELECTROCARDIOGRAM ABNORMAL [None]
